FAERS Safety Report 4430039-1 (Version None)
Quarter: 2004Q3

REPORT INFORMATION
  Report Type: 
  Country: None (occurrence: None)
  Receive Date: 20040817
  Receipt Date: 20040810
  Transmission Date: 20050211
  Serious: Yes (Hospitalization)
  Sender: FDA-Public Use
  Company Number: TPA2004A00985

PATIENT
  Age: 73 Year
  Sex: Male
  Weight: 120.2032 kg

DRUGS (9)
  1. ACTOS [Suspect]
     Indication: DIABETES MELLITUS NON-INSULIN-DEPENDENT
     Dosage: 45 MG, 1 IN 1 D, PER ORAL (SEE IMAGE)
     Route: 048
     Dates: start: 20000506, end: 20000606
  2. ACTOS [Suspect]
     Indication: DIABETES MELLITUS NON-INSULIN-DEPENDENT
     Dosage: 45 MG, 1 IN 1 D, PER ORAL (SEE IMAGE)
     Route: 048
     Dates: start: 20000606, end: 20040601
  3. METFORMIN HCL [Concomitant]
  4. TOPROL-XL [Concomitant]
  5. LIPITOR [Concomitant]
  6. SYNTHROID [Concomitant]
  7. ASPIRIN [Concomitant]
  8. LISINOPRIL [Concomitant]
  9. DETROL LA [Concomitant]

REACTIONS (2)
  - ATRIOVENTRICULAR BLOCK [None]
  - WEIGHT INCREASED [None]
